FAERS Safety Report 8302224 (Version 2)
Quarter: 2013Q2

REPORT INFORMATION
  Report Type: Spontaneous
  Country: US (occurrence: None)
  Receive Date: 20111122
  Receipt Date: 20120426
  Transmission Date: 20140414
  Serious: Yes (Other)
  Sender: FDA-Public Use
  Company Number: PHEH2011US02492

PATIENT
  Age: 34 Year
  Sex: Male

DRUGS (4)
  1. GILENYA [Suspect]
     Indication: RELAPSING-REMITTING MULTIPLE SCLEROSIS
     Dosage: 0.5 MG, QD, ORAL
     Route: 048
     Dates: start: 20110822
  2. FAMPRIDINE [Suspect]
  3. AMINO ACIDS (NO INGREDIENTS/SUBSTANCES) [Concomitant]
  4. VITAMINS NOS (VITAMINS NOS) [Concomitant]

REACTIONS (1)
  - FATIGUE [None]
